FAERS Safety Report 6355536-3 (Version None)
Quarter: 2009Q3

REPORT INFORMATION
  Report Type: 
  Country: None (occurrence: None)
  Receive Date: 20090914
  Receipt Date: 20090910
  Transmission Date: 20100115
  Serious: Yes (Life-Threatening)
  Sender: FDA-Public Use
  Company Number: PHEH2009US10705

PATIENT
  Sex: Male

DRUGS (2)
  1. TEKTURNA [Suspect]
     Indication: HYPERTENSION
     Dosage: UNK, DAILY
     Route: 048
  2. BETA BLOCKING AGENTS [Suspect]
     Indication: HYPERTENSION
     Dosage: UNK, UNK
     Route: 048

REACTIONS (8)
  - CARDIAC TAMPONADE [None]
  - CHEST PAIN [None]
  - DYSPNOEA [None]
  - GRAVITATIONAL OEDEMA [None]
  - PERICARDIAL EFFUSION [None]
  - PERICARDIAL EXCISION [None]
  - PLEURAL EFFUSION [None]
  - SEROSITIS [None]
